FAERS Safety Report 11099719 (Version 1)
Quarter: 2015Q2

REPORT INFORMATION
  Report Type: Spontaneous
  Country: US (occurrence: None)
  Receive Date: 20150507
  Receipt Date: 20150507
  Transmission Date: 20150821
  Serious: No
  Sender: FDA-Public Use
  Company Number: None

PATIENT
  Age: 27 Year
  Sex: Male

DRUGS (1)
  1. LITHIUM. [Suspect]
     Active Substance: LITHIUM
     Indication: MENTAL DISORDER
     Dosage: GREATER THAN 1 YEAR, 400MG, BID, ORAL
     Route: 048

REACTIONS (2)
  - Tremor [None]
  - Seizure [None]

NARRATIVE: CASE EVENT DATE: 20150413
